FAERS Safety Report 6460867-2 (Version None)
Quarter: 2009Q4

REPORT INFORMATION
  Report Type: 
  Country: None (occurrence: None)
  Receive Date: 20091130
  Receipt Date: 20091121
  Transmission Date: 20100525
  Serious: Yes (Hospitalization, Other)
  Sender: FDA-Public Use
  Company Number: US-PFIZER INC-2009280595

PATIENT
  Sex: Male

DRUGS (1)
  1. TIKOSYN [Suspect]

REACTIONS (2)
  - DRUG DOSE OMISSION [None]
  - ORTHOPEDIC PROCEDURE [None]
